FAERS Safety Report 7655992-4 (Version None)
Quarter: 2011Q3

REPORT INFORMATION
  Report Type: 
  Country: None (occurrence: None)
  Receive Date: 20110804
  Receipt Date: 20110727
  Transmission Date: 20111222
  Serious: Yes (Other)
  Sender: FDA-Public Use
  Company Number: FR-JNJFOC-20110800300

PATIENT
  Age: 54 Year
  Sex: Female

DRUGS (3)
  1. NICORETTE [Suspect]
     Indication: SMOKING CESSATION THERAPY
     Dosage: 30 TABLETS DAILY
     Route: 048
     Dates: start: 20000101
  2. NICORETTE [Suspect]
     Indication: NICOTINE DEPENDENCE
     Dosage: 1 PATCH DAILY
     Route: 062
     Dates: start: 20110401, end: 20110615
  3. NICORETTE [Suspect]
     Route: 062

REACTIONS (5)
  - OVERDOSE [None]
  - APPLICATION SITE OEDEMA [None]
  - SKIN IRRITATION [None]
  - DRUG DEPENDENCE [None]
  - INCORRECT DRUG ADMINISTRATION DURATION [None]
